FAERS Safety Report 16914420 (Version 1)
Quarter: 2019Q4

REPORT INFORMATION
  Report Type: Spontaneous
  Country: US (occurrence: US)
  Receive Date: 20191014
  Receipt Date: 20191014
  Transmission Date: 20200122
  Serious: Yes (Other)
  Sender: FDA-Public Use
  Company Number: US-SA-2019SA279812

PATIENT
  Age: 70 Year
  Sex: Male

DRUGS (1)
  1. AFLIBERCEPT [Suspect]
     Active Substance: AFLIBERCEPT
     Dosage: UNK UNK, INJECTION
     Route: 065

REACTIONS (8)
  - Vitritis [Recovered/Resolved]
  - Pain [Unknown]
  - Conjunctival hyperaemia [Unknown]
  - Anterior chamber cell [Unknown]
  - Endophthalmitis [Unknown]
  - Stenotrophomonas infection [Unknown]
  - Visual acuity tests abnormal [Recovered/Resolved]
  - Hypopyon [Recovered/Resolved]
